FAERS Safety Report 12672171 (Version 1)
Quarter: 2016Q3

REPORT INFORMATION
  Report Type: Spontaneous
  Country: US (occurrence: None)
  Receive Date: 20160819
  Receipt Date: 20160819
  Transmission Date: 20161109
  Serious: Yes (Hospitalization)
  Sender: FDA-Public Use
  Company Number: None

PATIENT
  Age: 62 Year
  Sex: Female

DRUGS (9)
  1. OXY [Concomitant]
     Active Substance: BENZOYL PEROXIDE
  2. MEOTPROLO [Concomitant]
  3. MORPHINE [Concomitant]
     Active Substance: MORPHINE
  4. WARFARIN [Concomitant]
     Active Substance: WARFARIN
  5. HYCROCHOL [Concomitant]
  6. INLYTA [Suspect]
     Active Substance: AXITINIB
     Indication: RENAL CANCER
     Route: 048
     Dates: start: 20160723, end: 20160803
  7. LISINOPRIL. [Concomitant]
     Active Substance: LISINOPRIL
  8. METHODONE [Concomitant]
     Active Substance: METHADONE HYDROCHLORIDE
  9. LYRICA [Concomitant]
     Active Substance: PREGABALIN

REACTIONS (4)
  - Pain [None]
  - Confusional state [None]
  - Posterior reversible encephalopathy syndrome [None]
  - Bone pain [None]

NARRATIVE: CASE EVENT DATE: 201605
